FAERS Safety Report 20440089 (Version 1)
Quarter: 2022Q1

REPORT INFORMATION
  Report Type: Spontaneous
  Country: BE (occurrence: BE)
  Receive Date: 20220207
  Receipt Date: 20220207
  Transmission Date: 20220424
  Serious: Yes (Other)
  Sender: FDA-Public Use
  Company Number: BE-FERRINGPH-2022FE00411

PATIENT
  Age: 66 Year
  Sex: Male

DRUGS (8)
  1. FIRMAGON [Suspect]
     Active Substance: DEGARELIX ACETATE
     Indication: Product used for unknown indication
     Dosage: 240 MG, ONCE/SINGLE
     Route: 065
     Dates: start: 20220113
  2. FLUOXETINE EG [Concomitant]
     Dosage: 20 MG, 1 TIME DAILY
     Route: 048
  3. ISOBETADINE [Concomitant]
     Dosage: 1 ML, 2 TIMES DAILY
     Route: 061
  4. MIRTAZAPINE [Concomitant]
     Active Substance: MIRTAZAPINE
     Dosage: 30 MG, 1 TIME DAILY
     Route: 048
  5. MOMETASONE EG [Concomitant]
     Dosage: 50 UG, 2 TIMES DAILY
     Route: 045
  6. RIVOTRIL [Concomitant]
     Active Substance: CLONAZEPAM
     Dosage: 2 MG, 3 TIMES DAILY
     Route: 048
  7. TAMSULOSIN HYDROCHLORIDE [Concomitant]
     Active Substance: TAMSULOSIN HYDROCHLORIDE
     Dosage: 0.4 MG, 1 TIME DAILY
     Route: 048
  8. ZOLPIDEM [Concomitant]
     Active Substance: ZOLPIDEM TARTRATE
     Dosage: 10 MG, 1 TIME DAILY
     Route: 048

REACTIONS (1)
  - Retinal haemorrhage [Unknown]

NARRATIVE: CASE EVENT DATE: 20220121
